FAERS Safety Report 17316503 (Version 1)
Quarter: 2020Q1

REPORT INFORMATION
  Report Type: Spontaneous
  Country: TW (occurrence: TW)
  Receive Date: 20200124
  Receipt Date: 20200124
  Transmission Date: 20200409
  Serious: Yes (Death)
  Sender: FDA-Public Use
  Company Number: TW-CELGENEUS-TWN-20200108661

PATIENT
  Age: 91 Year
  Sex: Female
  Weight: 43 kg

DRUGS (6)
  1. MELPHALAN. [Concomitant]
     Active Substance: MELPHALAN
     Indication: CHEMOTHERAPY
     Dosage: 1ST LINE
     Route: 065
     Dates: start: 20181217
  2. BORTEZOMIB. [Concomitant]
     Active Substance: BORTEZOMIB
     Indication: CHEMOTHERAPY
     Dosage: 1ST LINE
     Route: 065
     Dates: start: 20181217
  3. PREDNISOLON [Concomitant]
     Active Substance: PREDNISOLONE
     Indication: CHEMOTHERAPY
     Dosage: 1ST LINE
     Route: 065
     Dates: start: 20181217
  4. DORISON [Concomitant]
     Indication: PRODUCT USED FOR UNKNOWN INDICATION
     Route: 065
     Dates: end: 20200113
  5. REVLIMID [Suspect]
     Active Substance: LENALIDOMIDE
     Indication: PLASMA CELL MYELOMA
     Dosage: 2ND LINE
     Route: 048
     Dates: start: 20190701
  6. DEXAMETHASONE. [Concomitant]
     Active Substance: DEXAMETHASONE
     Indication: CHEMOTHERAPY
     Dosage: 2ND LINE
     Route: 065
     Dates: start: 20190701

REACTIONS (1)
  - Plasma cell myeloma [Fatal]

NARRATIVE: CASE EVENT DATE: 20191230
